FAERS Safety Report 22064450 (Version 2)
Quarter: 2024Q1

REPORT INFORMATION
  Report Type: Spontaneous
  Country: US (occurrence: US)
  Receive Date: 20230306
  Receipt Date: 20240221
  Transmission Date: 20240410
  Serious: No
  Sender: FDA-Public Use
  Company Number: US-ELI_LILLY_AND_COMPANY-US202303000845

PATIENT
  Age: 62 Year
  Sex: Female

DRUGS (2)
  1. MOUNJARO [Suspect]
     Active Substance: TIRZEPATIDE
     Indication: Type 2 diabetes mellitus
     Dosage: 2.5 MG, UNKNOWN
     Route: 058
  2. MOUNJARO [Suspect]
     Active Substance: TIRZEPATIDE
     Dosage: 5 MG, UNKNOWN
     Route: 058

REACTIONS (1)
  - Injection site pain [Recovered/Resolved]
